FAERS Safety Report 4732917-2 (Version None)
Quarter: 2005Q3

REPORT INFORMATION
  Report Type: 
  Country: None (occurrence: None)
  Receive Date: 20050803
  Receipt Date: 20050517
  Transmission Date: 20060218
  Serious: No
  Sender: FDA-Public Use
  Company Number: US-GLAXOSMITHKLINE-A0558969A

PATIENT
  Age: 67 Year
  Sex: Male

DRUGS (5)
  1. AVANDAMET [Suspect]
     Dosage: 2TAB TWICE PER DAY
     Route: 048
     Dates: start: 20040501
  2. AMARYL [Concomitant]
  3. TOPROL-XL [Concomitant]
  4. LIPITOR [Concomitant]
  5. BENICAR [Concomitant]

REACTIONS (1)
  - OEDEMA PERIPHERAL [None]
